FAERS Safety Report 10035315 (Version 1)
Quarter: 2014Q1

REPORT INFORMATION
  Report Type: Report from Study
  Country: DE (occurrence: CO)
  Receive Date: 20140325
  Receipt Date: 20140325
  Transmission Date: 20141002
  Serious: Yes (Hospitalization)
  Sender: FDA-Public Use
  Company Number: DE-ACTELION-A-US2014-96584

PATIENT
  Sex: Male

DRUGS (1)
  1. VENTAVIS [Suspect]
     Indication: PULMONARY HYPERTENSION
     Dosage: SIX TIMES DAILY
     Route: 055
     Dates: start: 20131018

REACTIONS (3)
  - Thrombosis [Unknown]
  - Pain in extremity [Unknown]
  - Local swelling [Unknown]
